FAERS Safety Report 7887453-1 (Version None)
Quarter: 2011Q4

REPORT INFORMATION
  Report Type: 
  Country: None (occurrence: None)
  Receive Date: 20111102
  Receipt Date: 20110719
  Transmission Date: 20120403
  Serious: No
  Sender: FDA-Public Use
  Company Number: US-AMGEN-USASP2011036880

PATIENT
  Age: 61 Year
  Sex: Female

DRUGS (2)
  1. ENBREL [Suspect]
     Indication: RHEUMATOID ARTHRITIS
     Dates: start: 20060925
  2. TREXALL [Concomitant]

REACTIONS (6)
  - VOMITING [None]
  - RHEUMATOID ARTHRITIS [None]
  - MUSCULAR WEAKNESS [None]
  - CONSTIPATION [None]
  - ABDOMINAL PAIN UPPER [None]
  - BREAKTHROUGH PAIN [None]
